FAERS Safety Report 4984230-6 (Version None)
Quarter: 2006Q2

REPORT INFORMATION
  Report Type: 
  Country: None (occurrence: None)
  Receive Date: 20060420
  Receipt Date: 20060411
  Transmission Date: 20061013
  Serious: Yes (Hospitalization)
  Sender: FDA-Public Use
  Company Number: 200610498BVD

PATIENT
  Age: 52 Year
  Sex: Male
  Weight: 68 kg

DRUGS (2)
  1. LEVITRA [Suspect]
     Indication: PENIS DISORDER
     Dosage: 10 MG, TOTAL DAILY; ORAL
     Route: 048
     Dates: start: 20060217
  2. NOVALGIN [Concomitant]

REACTIONS (1)
  - LYMPHOCELE [None]
